FAERS Safety Report 4298994-0 (Version None)
Quarter: 2004Q1

REPORT INFORMATION
  Report Type: 
  Country: None (occurrence: None)
  Receive Date: 20040217
  Receipt Date: 20040202
  Transmission Date: 20041129
  Serious: Yes (Hospitalization, Other)
  Sender: FDA-Public Use
  Company Number: 2004-BP-00621BP

PATIENT
  Age: 69 Year
  Sex: Female

DRUGS (8)
  1. MICARDIS [Suspect]
     Indication: CEREBROVASCULAR ACCIDENT PROPHYLAXIS
     Dosage: NR (NR)
     Dates: start: 20030901, end: 20031013
  2. MICARDIS [Suspect]
     Indication: MYOCARDIAL INFARCTION
     Dosage: NR (NR)
     Dates: start: 20030901, end: 20031013
  3. MICARDIS [Suspect]
     Indication: PROPHYLAXIS
     Dosage: NR (NR)
     Dates: start: 20030901, end: 20031013
  4. AMLODIPINE BESYLATE [Concomitant]
  5. ESPIRONOLACTON (NR) [Concomitant]
  6. HIDROCLOROTIEZIDA (NR) [Concomitant]
  7. FUROSEMIDE [Concomitant]
  8. NITRATE (NR) [Concomitant]

REACTIONS (2)
  - HAEMODIALYSIS [None]
  - RENAL FAILURE [None]
